FAERS Safety Report 15003808 (Version 4)
Quarter: 2020Q4

REPORT INFORMATION
  Report Type: Report from Study
  Country: None (occurrence: US)
  Receive Date: 20180613
  Receipt Date: 20201125
  Transmission Date: 20210113
  Serious: Yes (Other)
  Sender: FDA-Public Use
  Company Number: US-ABBVIE-18K-163-2384851-00

PATIENT
  Age: 16 Year
  Sex: Male
  Weight: 59.93 kg

DRUGS (5)
  1. HUMIRA [Suspect]
     Active Substance: ADALIMUMAB
     Indication: CROHN^S DISEASE
     Route: 058
     Dates: start: 20180609, end: 20180609
  2. PREDNISONE. [Suspect]
     Active Substance: PREDNISONE
     Indication: CROHN^S DISEASE
     Route: 065
     Dates: start: 201806
  3. APRISO [Concomitant]
     Active Substance: MESALAMINE
     Indication: CROHN^S DISEASE
  4. OMEPRAZOLE. [Concomitant]
     Active Substance: OMEPRAZOLE
     Indication: HYPERCHLORHYDRIA
  5. HUMIRA [Suspect]
     Active Substance: ADALIMUMAB
     Indication: CROHN^S DISEASE
     Route: 058
     Dates: start: 20200914

REACTIONS (15)
  - Acne [Not Recovered/Not Resolved]
  - Hand deformity [Recovered/Resolved]
  - Oculogyric crisis [Recovered/Resolved]
  - Weight increased [Unknown]
  - Feeling hot [Recovered/Resolved]
  - Muscle tightness [Recovered/Resolved]
  - Pyrexia [Recovered/Resolved]
  - Gastrooesophageal reflux disease [Recovered/Resolved]
  - Insomnia [Unknown]
  - Seizure [Recovered/Resolved]
  - Speech disorder [Recovered/Resolved]
  - Hyperhidrosis [Recovered/Resolved]
  - Syncope [Recovered/Resolved]
  - Injection site pain [Recovered/Resolved]
  - Shock [Unknown]

NARRATIVE: CASE EVENT DATE: 201806
